FAERS Safety Report 18119837 (Version 2)
Quarter: 2020Q3

REPORT INFORMATION
  Report Type: Report from Study
  Country: DE (occurrence: DE)
  Receive Date: 20200806
  Receipt Date: 20200903
  Transmission Date: 20201103
  Serious: Yes (Life-Threatening, Hospitalization)
  Sender: FDA-Public Use
  Company Number: DE-SEATTLE GENETICS-2020SGN03488

PATIENT

DRUGS (13)
  1. DOXORUBICIN [Suspect]
     Active Substance: DOXORUBICIN
     Dosage: 40 MILLIGRAM/SQ. METER
     Route: 065
     Dates: start: 20200821
  2. CIPROFLOXACIN. [Concomitant]
     Active Substance: CIPROFLOXACIN
     Dosage: 300 MILLIGRAM
     Route: 065
     Dates: start: 20200729
  3. DEXAMETHASONE. [Suspect]
     Active Substance: DEXAMETHASONE
     Indication: HODGKIN^S DISEASE
     Dosage: 160 MILLIGRAM/SQ. METER
     Route: 065
     Dates: start: 20200724
  4. ETOPOSIDE. [Suspect]
     Active Substance: ETOPOSIDE
     Indication: HODGKIN^S DISEASE
     Dosage: 90 MILLIGRAM/SQ. METER
     Route: 065
     Dates: start: 20200724
  5. BRENTUXIMAB VEDOTIN?MPI [Suspect]
     Active Substance: BRENTUXIMAB VEDOTIN
     Indication: HODGKIN^S DISEASE
     Dosage: 180 MG/KG
     Route: 065
     Dates: start: 20200723
  6. CYCLOPHOSPHAMIDE. [Suspect]
     Active Substance: CYCLOPHOSPHAMIDE
     Indication: HODGKIN^S DISEASE
     Dosage: 2800 MILLIGRAM/SQ. METER
     Route: 065
     Dates: start: 20200724
  7. DACARBAZINE. [Suspect]
     Active Substance: DACARBAZINE
     Indication: HODGKIN^S DISEASE
     Dosage: 900 MILLIGRAM/SQ. METER
     Route: 065
     Dates: start: 20200725
  8. DACARBAZINE. [Suspect]
     Active Substance: DACARBAZINE
     Dosage: 200 MILLIGRAM/SQ. METER
     Route: 065
     Dates: start: 20200822
  9. CIPROFLOXACIN. [Concomitant]
     Active Substance: CIPROFLOXACIN
     Dosage: 500 MILLIGRAM
     Route: 065
  10. CYCLOPHOSPHAMIDE. [Suspect]
     Active Substance: CYCLOPHOSPHAMIDE
     Dosage: 1100 MILLIGRAM/SQ. METER
     Route: 065
     Dates: start: 20200821
  11. DEXAMETHASONE. [Suspect]
     Active Substance: DEXAMETHASONE
     Dosage: UNK
     Route: 065
     Dates: start: 20200821
  12. ETOPOSIDE. [Suspect]
     Active Substance: ETOPOSIDE
     Dosage: 150 MILLIGRAM/SQ. METER
     Route: 065
     Dates: start: 20200821
  13. DOXORUBICIN [Suspect]
     Active Substance: DOXORUBICIN
     Indication: HODGKIN^S DISEASE
     Dosage: 90 MILLIGRAM/SQ. METER
     Route: 065
     Dates: start: 20200724

REACTIONS (4)
  - Diarrhoea [Not Recovered/Not Resolved]
  - Mucosal inflammation [Not Recovered/Not Resolved]
  - Pyrexia [Not Recovered/Not Resolved]
  - Pancytopenia [Not Recovered/Not Resolved]

NARRATIVE: CASE EVENT DATE: 20200803
